FAERS Safety Report 5027092-3 (Version None)
Quarter: 2006Q2

REPORT INFORMATION
  Report Type: 
  Country: None (occurrence: None)
  Receive Date: 20060608
  Receipt Date: 20060526
  Transmission Date: 20061013
  Serious: Yes (Other)
  Sender: FDA-Public Use
  Company Number: 2006069546

PATIENT
  Age: 29 Year
  Sex: Female

DRUGS (4)
  1. PREDNISOLONE [Suspect]
     Indication: HERPES GESTATIONIS
     Dosage: (60 MG), ORAL
     Route: 048
  2. POTASSIUM PERMANGANATE (POTASSIUM PERMANGANATE) [Concomitant]
  3. BETAMETHASONE [Concomitant]
  4. ERYTHROMYCIN [Concomitant]

REACTIONS (3)
  - DRUG EXPOSURE DURING PREGNANCY [None]
  - HYPERGLYCAEMIA [None]
  - PREMATURE BABY [None]
